FAERS Safety Report 5137457-7 (Version None)
Quarter: 2006Q4

REPORT INFORMATION
  Report Type: 
  Country: None (occurrence: None)
  Receive Date: 20061030
  Receipt Date: 20051107
  Transmission Date: 20070319
  Serious: No
  Sender: FDA-Public Use
  Company Number: US-GLAXOSMITHKLINE-A0581199A

PATIENT
  Sex: Female

DRUGS (9)
  1. ADVAIR HFA [Suspect]
     Indication: CHRONIC OBSTRUCTIVE PULMONARY DISEASE
     Dosage: 1PUFF TWICE PER DAY
     Route: 055
  2. VELCADE [Concomitant]
  3. LEVOTHYROXIN [Concomitant]
  4. OMEPRAZOLE [Concomitant]
  5. ZYRTEC [Concomitant]
  6. PLAVIX [Concomitant]
  7. SINGULAIR [Concomitant]
  8. RHINOCORT [Concomitant]
     Route: 045
  9. AREDIA [Concomitant]

REACTIONS (2)
  - COUGH [None]
  - DRUG INEFFECTIVE [None]
